FAERS Safety Report 5098302-1 (Version None)
Quarter: 2006Q3

REPORT INFORMATION
  Report Type: 
  Country: None (occurrence: None)
  Receive Date: 20060906
  Receipt Date: 20060627
  Transmission Date: 20061208
  Serious: No
  Sender: FDA-Public Use
  Company Number: US-GLAXOSMITHKLINE-A0610660A

PATIENT
  Age: 38 Year
  Sex: Male

DRUGS (2)
  1. REQUIP [Suspect]
     Indication: RESTLESS LEGS SYNDROME
     Route: 048
     Dates: start: 20060615, end: 20060616
  2. CLONOPIN [Concomitant]

REACTIONS (4)
  - CHEST PAIN [None]
  - INSOMNIA [None]
  - PAIN IN EXTREMITY [None]
  - SOMNOLENCE [None]
